FAERS Safety Report 4838222-8 (Version None)
Quarter: 2005Q4

REPORT INFORMATION
  Report Type: 
  Country: None (occurrence: None)
  Receive Date: 20051128
  Receipt Date: 20051124
  Transmission Date: 20060501
  Serious: Yes (Other)
  Sender: FDA-Public Use
  Company Number: AU-MERCK-0511AUS00384

PATIENT
  Age: 60 Year
  Sex: Female

DRUGS (8)
  1. FOSAMAX [Suspect]
     Indication: OSTEOPOROSIS
     Route: 048
     Dates: start: 20020101
  2. GLUCOSAMINE SULFATE [Concomitant]
     Route: 048
     Dates: start: 20051028
  3. [COMPOSITION UNSPECIFIED] [Concomitant]
     Indication: ONYCHOCLASIS
     Route: 065
  4. VITAMINS (UNSPECIFIED) [Concomitant]
     Indication: CONVULSION
     Route: 048
     Dates: start: 20050101
  5. OMEGA-3 MARINE TRIGLYCERIDES [Concomitant]
     Indication: CONVULSION
     Route: 048
     Dates: start: 20050101
  6. VALPROATE SODIUM [Concomitant]
     Indication: EPILEPSY
     Route: 048
  7. LAMOTRIGINE [Concomitant]
     Indication: EPILEPSY
     Route: 048
  8. TOPIRAMATE [Concomitant]
     Indication: EPILEPSY
     Route: 048

REACTIONS (2)
  - CONVULSION [None]
  - ONYCHOCLASIS [None]
